FAERS Safety Report 26036118 (Version 1)
Quarter: 2025Q4

REPORT INFORMATION
  Report Type: Spontaneous
  Country: US (occurrence: US)
  Receive Date: 20251112
  Receipt Date: 20251112
  Transmission Date: 20260117
  Serious: No
  Sender: ELI LILLY AND COMPANY
  Company Number: US-ELI_LILLY_AND_COMPANY-US202510033948

PATIENT
  Age: 72 Year

DRUGS (12)
  1. ZEPBOUND [Suspect]
     Active Substance: TIRZEPATIDE
     Indication: Weight control
     Dosage: 2.5 MG, UNKNOWN
     Route: 065
     Dates: start: 202509
  2. ZEPBOUND [Suspect]
     Active Substance: TIRZEPATIDE
     Indication: Weight control
     Dosage: 2.5 MG, UNKNOWN
     Route: 065
     Dates: start: 202509
  3. ZEPBOUND [Suspect]
     Active Substance: TIRZEPATIDE
     Indication: Weight control
     Dosage: 2.5 MG, UNKNOWN
     Route: 065
     Dates: start: 202509
  4. ZEPBOUND [Suspect]
     Active Substance: TIRZEPATIDE
     Indication: Weight control
     Dosage: 2.5 MG, UNKNOWN
     Route: 065
     Dates: start: 202509
  5. ZEPBOUND [Suspect]
     Active Substance: TIRZEPATIDE
     Indication: Chronic obstructive pulmonary disease
     Dosage: 5 MG, UNKNOWN
     Route: 065
     Dates: start: 202510
  6. ZEPBOUND [Suspect]
     Active Substance: TIRZEPATIDE
     Indication: Chronic obstructive pulmonary disease
     Dosage: 5 MG, UNKNOWN
     Route: 065
     Dates: start: 202510
  7. ZEPBOUND [Suspect]
     Active Substance: TIRZEPATIDE
     Indication: Chronic obstructive pulmonary disease
     Dosage: 5 MG, UNKNOWN
     Route: 065
     Dates: start: 202510
  8. ZEPBOUND [Suspect]
     Active Substance: TIRZEPATIDE
     Indication: Chronic obstructive pulmonary disease
     Dosage: 5 MG, UNKNOWN
     Route: 065
     Dates: start: 202510
  9. ZEPBOUND [Suspect]
     Active Substance: TIRZEPATIDE
     Indication: Cardiac disorder
  10. ZEPBOUND [Suspect]
     Active Substance: TIRZEPATIDE
     Indication: Cardiac disorder
  11. ZEPBOUND [Suspect]
     Active Substance: TIRZEPATIDE
     Indication: Cardiac disorder
  12. ZEPBOUND [Suspect]
     Active Substance: TIRZEPATIDE
     Indication: Cardiac disorder

REACTIONS (2)
  - Nausea [Recovered/Resolved]
  - Drug ineffective [Unknown]

NARRATIVE: CASE EVENT DATE: 20251001
